FAERS Safety Report 7240584-1 (Version None)
Quarter: 2011Q1

REPORT INFORMATION
  Report Type: 
  Country: None (occurrence: None)
  Receive Date: 20110120
  Receipt Date: 20110120
  Transmission Date: 20110831
  Serious: Yes (Other)
  Sender: FDA-Public Use
  Company Number: None

PATIENT
  Sex: Male
  Weight: 60.782 kg

DRUGS (1)
  1. FLUTICASONE PROPIONATE [Suspect]
     Indication: SINUSITIS
     Dosage: 50 MCG / PER SPRAY 1X DAY NASAL
     Route: 045
     Dates: start: 20101220, end: 20110101

REACTIONS (7)
  - ABDOMINAL DISCOMFORT [None]
  - TOOTH DISORDER [None]
  - EPISTAXIS [None]
  - NIGHTMARE [None]
  - VISION BLURRED [None]
  - INTRAOCULAR PRESSURE INCREASED [None]
  - GINGIVAL DISORDER [None]
